FAERS Safety Report 19588371 (Version 5)
Quarter: 2021Q3

REPORT INFORMATION
  Report Type: Spontaneous
  Country: US (occurrence: US)
  Receive Date: 20210721
  Receipt Date: 20210925
  Transmission Date: 20211014
  Serious: Yes (Other)
  Sender: FDA-Public Use
  Company Number: US-SA-2021SA239097

PATIENT
  Age: 15 Year
  Sex: Female
  Weight: 66 kg

DRUGS (8)
  1. DESONIDE. [Concomitant]
     Active Substance: DESONIDE
     Indication: DERMATITIS ATOPIC
     Dosage: ONE TO TWICE DAILY
     Route: 061
  2. DUPIXENT [Suspect]
     Active Substance: DUPILUMAB
     Indication: DERMATITIS ATOPIC
     Dosage: 300 MG, QOW
     Route: 058
     Dates: start: 20210406
  3. DERMAREST [Concomitant]
     Dosage: UNK UNK, PRN
  4. ALBUTEROL [SALBUTAMOL] [Concomitant]
     Active Substance: ALBUTEROL
     Indication: COUGH
     Dosage: UNK UNK, PRN
     Route: 055
  5. ELIDEL [Concomitant]
     Active Substance: PIMECROLIMUS
     Indication: DERMATITIS ATOPIC
     Dosage: UNK UNK, BID
     Route: 061
  6. CETAPHIL [SOFT SOAP] [Concomitant]
     Active Substance: SOAP
  7. ALBUTEROL [SALBUTAMOL] [Concomitant]
     Active Substance: ALBUTEROL
     Indication: WHEEZING
  8. MOMETASONE FUROATE. [Concomitant]
     Active Substance: MOMETASONE FUROATE
     Indication: DERMATITIS ATOPIC
     Dosage: 2?3X
     Route: 061

REACTIONS (18)
  - Diarrhoea [Unknown]
  - Erythema [Unknown]
  - Product dose omission issue [Unknown]
  - Urticaria [Unknown]
  - Swelling [Unknown]
  - Sleep disorder [Unknown]
  - Eye discharge [Unknown]
  - Lacrimation increased [Unknown]
  - Anxiety [Unknown]
  - Rash [Unknown]
  - Rhinorrhoea [Unknown]
  - Conjunctivitis [Unknown]
  - Ocular hyperaemia [Unknown]
  - Stress [Unknown]
  - Oedema [Unknown]
  - Eye pruritus [Unknown]
  - Pruritus [Unknown]
  - Dry skin [Unknown]

NARRATIVE: CASE EVENT DATE: 2021
